FAERS Safety Report 6019650-4 (Version None)
Quarter: 2008Q4

REPORT INFORMATION
  Report Type: 
  Country: None (occurrence: None)
  Receive Date: 20081224
  Receipt Date: 20081217
  Transmission Date: 20090506
  Serious: Yes (Hospitalization)
  Sender: FDA-Public Use
  Company Number: DO-JNJFOC-20081205026

PATIENT
  Age: 24 Year
  Sex: Female
  Weight: 52.16 kg

DRUGS (2)
  1. MOTRIN IB [Suspect]
     Route: 048
  2. MOTRIN IB [Suspect]
     Indication: DYSMENORRHOEA
     Dosage: TIMES 2 DOSES
     Route: 048

REACTIONS (4)
  - CONTUSION [None]
  - DYSPNOEA [None]
  - HYPERSENSITIVITY [None]
  - SWELLING [None]
